FAERS Safety Report 8822366 (Version 3)
Quarter: 2012Q4

REPORT INFORMATION
  Report Type: 
  Country: JP (occurrence: JP)
  Receive Date: 20121003
  Receipt Date: 20121203
  Transmission Date: 20130627
  Serious: Yes (Other)
  Sender: FDA-Public Use
  Company Number: PHHY2012JP085393

PATIENT
  Age: 47 Year
  Sex: Female

DRUGS (13)
  1. ZOMETA [Suspect]
     Indication: METASTASES TO BONE
     Dosage: 4 mg, per every 28 days
     Route: 042
     Dates: start: 20110419, end: 20120927
  2. LOXOPROFEN [Concomitant]
     Dosage: 180 mg, UNK
     Route: 048
  3. PIROLACTON [Concomitant]
     Dosage: 125 mg, UNK
     Route: 048
  4. LASIX [Concomitant]
     Dosage: 80 mg, UNK
     Route: 048
  5. MAGMITT [Concomitant]
     Dosage: 990 mg, UNK
     Route: 048
  6. PERORIC [Concomitant]
     Dosage: 30 mg, UNK
     Route: 048
  7. LINTON [Concomitant]
     Dosage: 0.75 mg, UNK
     Route: 048
  8. LYRICA [Concomitant]
     Dosage: 75 mg, UNK
     Route: 048
  9. EPEL [Concomitant]
     Dosage: 150 mg, UNK
     Route: 048
  10. LANSOPRAZOLE [Concomitant]
     Dosage: 30 mg, UNK
     Route: 048
  11. POLAPREZINC [Concomitant]
     Dosage: 2 DF, UNK
     Route: 048
  12. PRIMPERAN [Concomitant]
     Dosage: 15 mg, UNK
     Route: 048
  13. HYSRON H [Concomitant]
     Dosage: 1200 mg, UNK
     Route: 048

REACTIONS (5)
  - Osteomyelitis [Recovering/Resolving]
  - Facial pain [Unknown]
  - Sinusitis [Not Recovered/Not Resolved]
  - Pyrexia [Unknown]
  - Pain [Unknown]
